FAERS Safety Report 15429461 (Version 3)
Quarter: 2018Q4

REPORT INFORMATION
  Report Type: Report from Study
  Country: None (occurrence: DE)
  Receive Date: 20180926
  Receipt Date: 20181019
  Transmission Date: 20190204
  Serious: Yes (Death, Hospitalization, Other)
  Sender: FDA-Public Use
  Company Number: DE-ABBVIE-18S-062-2492823-00

PATIENT
  Age: 70 Year
  Sex: Male

DRUGS (5)
  1. QUETIAPIN RETARD [Concomitant]
     Active Substance: QUETIAPINE
     Indication: PRODUCT USED FOR UNKNOWN INDICATION
     Dosage: AT NIGHT
  2. QUETIAPIN [Concomitant]
     Active Substance: QUETIAPINE
     Indication: PRODUCT USED FOR UNKNOWN INDICATION
  3. DUODOPA [Suspect]
     Active Substance: CARBIDOPA\LEVODOPA
     Dosage: MD NOT REPORTED; CRD 2.9 ML/HR; CRN 1 ML/HR; ED NOT REPORTED
     Route: 050
     Dates: start: 2018
  4. DUODOPA [Suspect]
     Active Substance: CARBIDOPA\LEVODOPA
     Indication: PARKINSON^S DISEASE
     Dosage: MD 9 ML; CRD 2.3 ML/HR; CRN 1 ML/HR; ED 2.5 ML
     Route: 050
     Dates: start: 20120330, end: 2018
  5. ZOPICLON [Concomitant]
     Active Substance: ZOPICLONE
     Indication: PRODUCT USED FOR UNKNOWN INDICATION
     Dosage: AS NEEDED

REACTIONS (19)
  - Gastrointestinal injury [Fatal]
  - Gastrointestinal injury [Unknown]
  - Abdominal pain lower [Recovering/Resolving]
  - Stoma site infection [Recovering/Resolving]
  - Internal haemorrhage [Fatal]
  - Pneumonia [Fatal]
  - Intestinal pseudo-obstruction [Unknown]
  - Vomiting [Recovered/Resolved]
  - Abdominal pain [Recovering/Resolving]
  - Constipation [Recovering/Resolving]
  - Stoma site discharge [Unknown]
  - Stoma site hypergranulation [Recovering/Resolving]
  - Upper gastrointestinal haemorrhage [Fatal]
  - Hypotension [Unknown]
  - Stoma site discharge [Recovering/Resolving]
  - Ileus [Fatal]
  - Abdominal distension [Recovering/Resolving]
  - C-reactive protein increased [Unknown]
  - Gastrointestinal haemorrhage [Unknown]

NARRATIVE: CASE EVENT DATE: 201804
